FAERS Safety Report 17109541 (Version 2)
Quarter: 2022Q1

REPORT INFORMATION
  Report Type: Spontaneous
  Country: JP (occurrence: JP)
  Receive Date: 20191204
  Receipt Date: 20220127
  Transmission Date: 20220423
  Serious: Yes (Other)
  Sender: FDA-Public Use
  Company Number: JP-SUN PHARMACEUTICAL INDUSTRIES LTD-2019R1-229141

PATIENT
  Age: 54 Year
  Sex: Female

DRUGS (1)
  1. MESALAMINE [Suspect]
     Active Substance: MESALAMINE
     Indication: Crohn^s disease
     Dosage: 3 GRAM, DAILY
     Route: 065

REACTIONS (3)
  - Obstructive airways disorder [Recovered/Resolved]
  - Lung disorder [Recovered/Resolved]
  - Hypersensitivity [Recovered/Resolved]
